FAERS Safety Report 12708177 (Version 2)
Quarter: 2016Q3

REPORT INFORMATION
  Report Type: Spontaneous
  Country: GB (occurrence: GB)
  Receive Date: 20160901
  Receipt Date: 20160922
  Transmission Date: 20161109
  Serious: Yes (Death, Hospitalization, Other)
  Sender: FDA-Public Use
  Company Number: GB-PFIZER INC-2906170

PATIENT
  Sex: Female

DRUGS (3)
  1. DEFEROXAMINE MESILATE [Suspect]
     Active Substance: DEFEROXAMINE MESYLATE
     Dosage: 1.5 G, OVER 8 HOURS, FREQ: 5 WEEK; INTERVAL: 1.
     Route: 065
     Dates: start: 20150601
  2. DEFEROXAMINE MESILATE [Suspect]
     Active Substance: DEFEROXAMINE MESYLATE
     Dosage: 1.5 G, OVER 8 HOURS, FREQ: 5 WEEK; INTERVAL: 1.
     Route: 065
     Dates: start: 20150601
  3. WATER FOR INJECTION [Suspect]
     Active Substance: WATER
     Dosage: 35 ML, OVER 8 HOURS, FREQ: 5 WEEK; INTERVAL: 1.
     Route: 065
     Dates: start: 20150601

REACTIONS (3)
  - Death [Fatal]
  - Unresponsive to stimuli [Not Recovered/Not Resolved]
  - Device related infection [Not Recovered/Not Resolved]
